FAERS Safety Report 5300709-1 (Version None)
Quarter: 2007Q2

REPORT INFORMATION
  Report Type: 
  Country: None (occurrence: None)
  Receive Date: 20070418
  Receipt Date: 20070410
  Transmission Date: 20071010
  Serious: Yes (Hospitalization)
  Sender: FDA-Public Use
  Company Number: FR-GILEAD-2006-0010270

PATIENT
  Sex: Male
  Weight: 64 kg

DRUGS (10)
  1. TRUVADA [Suspect]
     Indication: HIV INFECTION
     Route: 048
     Dates: start: 20060831
  2. EFAVIRENZ [Suspect]
     Indication: HIV INFECTION
     Route: 048
     Dates: start: 20060831
  3. RIFATER [Concomitant]
     Route: 048
     Dates: start: 20060728
  4. MYAMBUTOL [Concomitant]
     Indication: MYCOBACTERIAL INFECTION
     Route: 048
     Dates: start: 20060728
  5. ZECLAR [Concomitant]
     Indication: MYCOBACTERIAL INFECTION
     Route: 048
     Dates: start: 20060728
  6. CORTANCYL [Concomitant]
     Route: 048
     Dates: start: 20060810
  7. RIFINAH [Concomitant]
     Indication: MYCOBACTERIAL INFECTION
     Route: 048
     Dates: start: 20061025
  8. BACTRIM [Concomitant]
     Indication: PROPHYLAXIS
     Route: 048
     Dates: start: 20060707
  9. VALACYCLOVIR HCL [Concomitant]
     Indication: ANTIVIRAL PROPHYLAXIS
     Route: 048
     Dates: start: 20060713
  10. CORTISONE ACETATE [Concomitant]
     Route: 048
     Dates: start: 20061222

REACTIONS (4)
  - IMMUNE RECONSTITUTION SYNDROME [None]
  - LYMPHADENITIS [None]
  - PYREXIA [None]
  - VOMITING [None]
